FAERS Safety Report 23732787 (Version 2)
Quarter: 2024Q2

REPORT INFORMATION
  Report Type: Report from Study
  Country: US (occurrence: US)
  Receive Date: 20240411
  Receipt Date: 20240602
  Transmission Date: 20240715
  Serious: No
  Sender: FDA-Public Use
  Company Number: US-AstraZeneca-CH-00601131A

PATIENT
  Age: 66 Year
  Sex: Female

DRUGS (3)
  1. ULTOMIRIS [Suspect]
     Active Substance: RAVULIZUMAB-CWVZ
     Indication: Product used for unknown indication
     Dosage: UNK
     Route: 065
  2. VYVGART [Concomitant]
     Active Substance: EFGARTIGIMOD ALFA-FCAB
     Indication: Product used for unknown indication
     Dosage: UNK
     Route: 065
  3. AZATHIOPRINE VIS [Concomitant]
     Indication: Product used for unknown indication
     Dosage: UNK
     Route: 065

REACTIONS (2)
  - Diplopia [Not Recovered/Not Resolved]
  - Headache [Unknown]

NARRATIVE: CASE EVENT DATE: 20240404
